FAERS Safety Report 14617567 (Version 1)
Quarter: 2018Q1

REPORT INFORMATION
  Report Type: Spontaneous
  Country: HK (occurrence: HK)
  Receive Date: 20180309
  Receipt Date: 20180309
  Transmission Date: 20180509
  Serious: Yes (Other)
  Sender: FDA-Public Use
  Company Number: HK-ROCHE-2081007

PATIENT
  Age: 75 Year
  Sex: Female

DRUGS (1)
  1. HERCEPTIN [Suspect]
     Active Substance: TRASTUZUMAB
     Indication: HER-2 POSITIVE BREAST CANCER
     Dosage: 600/5ML?08-NOV-2017
     Route: 058
     Dates: start: 20171018

REACTIONS (1)
  - Therapeutic response decreased [Unknown]
